FAERS Safety Report 17681818 (Version 1)
Quarter: 2020Q2

REPORT INFORMATION
  Report Type: Spontaneous
  Country: ES (occurrence: ES)
  Receive Date: 20200417
  Receipt Date: 20200417
  Transmission Date: 20200714
  Serious: Yes (Hospitalization, Other)
  Sender: FDA-Public Use
  Company Number: ES-AUROBINDO-AUR-APL-2020-019820

PATIENT
  Age: 73 Year
  Sex: Male

DRUGS (5)
  1. DOLQUINE [Suspect]
     Active Substance: HYDROXYCHLOROQUINE SULFATE
     Indication: CORONAVIRUS INFECTION
  2. AZITHROMYCIN ANHYDROUS. [Suspect]
     Active Substance: AZITHROMYCIN ANHYDROUS
     Indication: CORONAVIRUS INFECTION
     Dosage: 500 MILLIGRAM, ONCE A DAY
     Route: 048
     Dates: start: 20200322, end: 20200407
  3. DOLQUINE [Suspect]
     Active Substance: HYDROXYCHLOROQUINE SULFATE
     Indication: PNEUMONIA
     Dosage: 400 MILLIGRAM, ONCE A DAY
     Route: 048
     Dates: start: 20200320, end: 20200407
  4. ERTAPENEM. [Suspect]
     Active Substance: ERTAPENEM SODIUM
     Indication: CORONAVIRUS INFECTION
     Dosage: 1 GRAM, ONCE A DAY
     Route: 042
     Dates: start: 20200324, end: 20200403
  5. PIPERACILLIN+TAZOBACTAM 4/0.5G POWDERFORSOLUTIONFORINFUSION [Suspect]
     Active Substance: PIPERACILLIN SODIUM\TAZOBACTAM SODIUM
     Indication: CORONAVIRUS INFECTION
     Dosage: UNK UNK, ONCE A DAY
     Route: 042
     Dates: start: 20200321, end: 20200405

REACTIONS (3)
  - Bradycardia [Recovering/Resolving]
  - Hepatitis acute [Recovering/Resolving]
  - Haemorrhage [Recovering/Resolving]

NARRATIVE: CASE EVENT DATE: 20200403
